FAERS Safety Report 22066705 (Version 1)
Quarter: 2023Q1

REPORT INFORMATION
  Report Type: Spontaneous
  Country: US (occurrence: US)
  Receive Date: 20230306
  Receipt Date: 20230306
  Transmission Date: 20230417
  Serious: No
  Sender: FDA-Public Use
  Company Number: US-BAUSCH-BL-2023-003587

PATIENT
  Age: 57 Year
  Sex: Female

DRUGS (2)
  1. NIFEDIPINE [Suspect]
     Active Substance: NIFEDIPINE
     Indication: Blood pressure measurement
     Dosage: EXTENDED-RELEASE TABLETS
     Route: 048
  2. NIFEDIPINE [Concomitant]
     Active Substance: NIFEDIPINE
     Indication: Blood pressure measurement
     Dosage: EXTENDED-RELEASE TABLETS
     Route: 048

REACTIONS (4)
  - Illness [Unknown]
  - Product availability issue [Unknown]
  - Product use issue [Unknown]
  - Drug ineffective [Unknown]
